FAERS Safety Report 4761531-8 (Version None)
Quarter: 2005Q3

REPORT INFORMATION
  Report Type: 
  Country: None (occurrence: None)
  Receive Date: 20050906
  Receipt Date: 20050824
  Transmission Date: 20060218
  Serious: Yes (Other)
  Sender: FDA-Public Use
  Company Number: 2005AC01271

PATIENT
  Age: 56 Year
  Sex: Female

DRUGS (2)
  1. ANASTROZOLE [Suspect]
     Indication: BREAST CANCER
  2. ANASTROZOLE [Suspect]
     Indication: ADENOCARCINOMA

REACTIONS (6)
  - ACUTE PROMYELOCYTIC LEUKAEMIA [None]
  - BLOOD LACTATE DEHYDROGENASE INCREASED [None]
  - FIBRIN INCREASED [None]
  - HAEMOGLOBIN DECREASED [None]
  - PLATELET COUNT DECREASED [None]
  - WHITE BLOOD CELL COUNT DECREASED [None]
